FAERS Safety Report 5652922-1 (Version None)
Quarter: 2008Q1

REPORT INFORMATION
  Report Type: 
  Country: None (occurrence: None)
  Receive Date: 20080306
  Receipt Date: 20080222
  Transmission Date: 20080703
  Serious: Yes (Other)
  Sender: FDA-Public Use
  Company Number: US-AMGEN-KDL266656

PATIENT
  Sex: Female

DRUGS (3)
  1. NEUPOGEN [Suspect]
     Indication: DRUG USE FOR UNKNOWN INDICATION
  2. PEGASYS [Suspect]
     Dates: start: 20070205
  3. RIBAVIRIN [Suspect]
     Dates: start: 20070205

REACTIONS (25)
  - ALOPECIA [None]
  - ANAEMIA [None]
  - ANOREXIA [None]
  - ASTHENIA [None]
  - CHEST PAIN [None]
  - CONSTIPATION [None]
  - DECREASED APPETITE [None]
  - DEPRESSION [None]
  - DIZZINESS [None]
  - ECZEMA [None]
  - FATIGUE [None]
  - HEADACHE [None]
  - HYPOAESTHESIA [None]
  - INJECTION SITE BRUISING [None]
  - INJECTION SITE RASH [None]
  - INSOMNIA [None]
  - MEMORY IMPAIRMENT [None]
  - MUSCLE SPASMS [None]
  - MUSCULOSKELETAL PAIN [None]
  - OROPHARYNGEAL BLISTERING [None]
  - SKIN FISSURES [None]
  - SKIN INFLAMMATION [None]
  - WEIGHT DECREASED [None]
  - WEIGHT INCREASED [None]
  - WHITE BLOOD CELL COUNT DECREASED [None]
